FAERS Safety Report 7538014-5 (Version None)
Quarter: 2011Q2

REPORT INFORMATION
  Report Type: 
  Country: None (occurrence: None)
  Receive Date: 20110609
  Receipt Date: 20110603
  Transmission Date: 20111010
  Serious: Yes (Other)
  Sender: FDA-Public Use
  Company Number: US-PFIZER INC-2011121127

PATIENT
  Sex: Female
  Weight: 68.027 kg

DRUGS (6)
  1. LAMICTAL [Suspect]
     Indication: BIPOLAR II DISORDER
     Dosage: 100 MG DAILY
     Route: 048
     Dates: start: 20110201, end: 20110301
  2. LAMICTAL [Suspect]
     Dosage: 6.25 MG, 1X/DAY FOR 2 WEEKS
  3. LORAZEPAM [Concomitant]
     Dosage: UNK
     Dates: start: 20101101
  4. DOXYCYCLINE HYCLATE [Suspect]
     Indication: MALARIA PROPHYLAXIS
     Dosage: UNK
     Route: 048
     Dates: start: 20110301, end: 20110301
  5. LAMICTAL [Suspect]
     Dosage: 12.5 MG, 1X/DAY FOR 2 WEEKS
  6. CONCERTA [Concomitant]
     Dosage: UNK
     Dates: start: 20101101

REACTIONS (2)
  - DERMATITIS BULLOUS [None]
  - DRUG HYPERSENSITIVITY [None]
